FAERS Safety Report 11461995 (Version 1)
Quarter: 2015Q3

REPORT INFORMATION
  Report Type: Spontaneous
  Country: US (occurrence: US)
  Receive Date: 20150831
  Receipt Date: 20150831
  Transmission Date: 20151125
  Serious: Yes (Other)
  Sender: FDA-Public Use
  Company Number: US-ELI_LILLY_AND_COMPANY-US201009004757

PATIENT
  Age: 16 Year
  Sex: Female

DRUGS (2)
  1. CYMBALTA [Suspect]
     Active Substance: DULOXETINE HYDROCHLORIDE
     Indication: ANXIETY
     Dosage: 60 MG, DAILY (1/D)
     Dates: end: 201006
  2. CYMBALTA [Suspect]
     Active Substance: DULOXETINE HYDROCHLORIDE
     Dosage: 30 MG, 3/D
     Dates: start: 201006

REACTIONS (10)
  - Irritability [Unknown]
  - Off label use [Unknown]
  - Abnormal behaviour [Unknown]
  - Seizure [Unknown]
  - Fall [Recovered/Resolved]
  - Weight increased [Unknown]
  - Knee arthroplasty [Unknown]
  - Immobile [Unknown]
  - Somnambulism [Unknown]
  - Anxiety [Unknown]

NARRATIVE: CASE EVENT DATE: 200910
